FAERS Safety Report 5832449-4 (Version None)
Quarter: 2008Q3

REPORT INFORMATION
  Report Type: 
  Country: None (occurrence: None)
  Receive Date: 20080730
  Receipt Date: 20080721
  Transmission Date: 20090109
  Serious: Yes (Hospitalization, Other)
  Sender: FDA-Public Use
  Company Number: 19791

PATIENT
  Age: 60 Year
  Sex: Male

DRUGS (1)
  1. VITAMIN A [Suspect]
     Indication: DRUG USE FOR UNKNOWN INDICATION

REACTIONS (3)
  - BLOOD ALKALINE PHOSPHATASE INCREASED [None]
  - CHOLESTATIC LIVER INJURY [None]
  - LIVER TRANSPLANT [None]
